FAERS Safety Report 21370523 (Version 1)
Quarter: 2022Q3

REPORT INFORMATION
  Report Type: Spontaneous
  Country: US (occurrence: None)
  Receive Date: 20220922
  Receipt Date: 20220922
  Transmission Date: 20221027
  Serious: Yes (Other)
  Sender: FDA-Public Use
  Company Number: None

PATIENT
  Age: 34 Year
  Sex: Female
  Weight: 71.67 kg

DRUGS (1)
  1. LAMOTRIGINE [Suspect]
     Active Substance: LAMOTRIGINE

REACTIONS (3)
  - Seizure [None]
  - Product substitution issue [None]
  - Therapeutic response changed [None]

NARRATIVE: CASE EVENT DATE: 20130101
